FAERS Safety Report 8455446-1 (Version None)
Quarter: 2012Q2

REPORT INFORMATION
  Report Type: 
  Country: None (occurrence: None)
  Receive Date: 20120621
  Receipt Date: 20120607
  Transmission Date: 20120825
  Serious: No
  Sender: FDA-Public Use
  Company Number: US-B.I. PHARMACEUTICALS,INC./RIDGEFIELD-2011-BP-21623BP

PATIENT
  Age: 77 Year
  Sex: Male

DRUGS (4)
  1. PRADAXA [Suspect]
     Indication: ATRIAL FLUTTER
  2. SOLGAR VM 74 [Concomitant]
     Indication: SUPPLEMENTATION THERAPY
  3. FINASTERIDE [Concomitant]
     Indication: DYSURIA
  4. PRADAXA [Suspect]
     Indication: ATRIAL FIBRILLATION
     Dosage: 300 MG
     Route: 048
     Dates: start: 20110601

REACTIONS (2)
  - UNEVALUABLE EVENT [None]
  - RECTAL HAEMORRHAGE [None]
